FAERS Safety Report 14298555 (Version 1)
Quarter: 2017Q4

REPORT INFORMATION
  Report Type: Spontaneous
  Country: US (occurrence: US)
  Receive Date: 20171218
  Receipt Date: 20171218
  Transmission Date: 20180321
  Serious: No
  Sender: FDA-Public Use
  Company Number: US-ACTELION-A-NJ2017-164398

PATIENT
  Age: 40 Year
  Sex: Female
  Weight: 63.49 kg

DRUGS (1)
  1. VELETRI [Suspect]
     Active Substance: EPOPROSTENOL
     Indication: PULMONARY HYPERTENSION
     Dosage: 85 NG/KG, PER MIN
     Route: 042

REACTIONS (2)
  - Catheter site inflammation [Unknown]
  - Dermatitis contact [Unknown]
